FAERS Safety Report 25461136 (Version 2)
Quarter: 2025Q3

REPORT INFORMATION
  Report Type: Spontaneous
  Country: EU (occurrence: EU)
  Receive Date: 20250620
  Receipt Date: 20250922
  Transmission Date: 20251020
  Serious: Yes (Hospitalization)
  Sender: PFIZER
  Company Number: None

PATIENT
  Age: 84 Year
  Sex: Male
  Weight: 53 kg

DRUGS (3)
  1. VORICONAZOLE [Suspect]
     Active Substance: VORICONAZOLE
     Indication: Sinusitis fungal
     Dosage: 400 MG, 1X/DAY
     Route: 048
     Dates: start: 20250106, end: 20250501
  2. VORICONAZOLE [Suspect]
     Active Substance: VORICONAZOLE
     Dosage: 600 MG, 1X/DAY
     Route: 048
     Dates: start: 20250501, end: 20250527
  3. VORICONAZOLE [Suspect]
     Active Substance: VORICONAZOLE
     Dosage: 400 MG, 1X/DAY
     Route: 048
     Dates: start: 20250527, end: 20250530

REACTIONS (2)
  - Mixed liver injury [Recovered/Resolved]
  - Off label use [Unknown]

NARRATIVE: CASE EVENT DATE: 20250106
